FAERS Safety Report 7677836-7 (Version None)
Quarter: 2011Q3

REPORT INFORMATION
  Report Type: 
  Country: None (occurrence: None)
  Receive Date: 20110811
  Receipt Date: 20110207
  Transmission Date: 20111222
  Serious: Yes (Other)
  Sender: FDA-Public Use
  Company Number: DE-BAYER-2010-001835

PATIENT
  Age: 44 Year
  Sex: Female

DRUGS (3)
  1. ESTRADIOL VALERATE/DIENOGEST [Suspect]
     Indication: ORAL CONTRACEPTION
     Dosage: UNK
     Route: 048
     Dates: start: 20090501
  2. ANTINEOPLASTIC AGENTS [Concomitant]
     Dosage: UNK
     Dates: start: 20060101
  3. MITOXANTRONE [Concomitant]
     Indication: MULTIPLE SCLEROSIS RELAPSE
     Dosage: 1 DF, Q3MON

REACTIONS (5)
  - AMENORRHOEA [None]
  - OEDEMA PERIPHERAL [None]
  - FATIGUE [None]
  - ALOPECIA [None]
  - HYPOAESTHESIA [None]
